FAERS Safety Report 16427563 (Version 2)
Quarter: 2019Q2

REPORT INFORMATION
  Report Type: Spontaneous
  Country: TR (occurrence: TR)
  Receive Date: 20190613
  Receipt Date: 20190626
  Transmission Date: 20190711
  Serious: Yes (Death, Hospitalization)
  Sender: FDA-Public Use
  Company Number: TR-ASTRAZENECA-2019SE86251

PATIENT
  Sex: Female

DRUGS (1)
  1. IRESSA [Suspect]
     Active Substance: GEFITINIB
     Dosage: 250 MG
     Route: 048
     Dates: start: 201905

REACTIONS (4)
  - Pyrexia [Unknown]
  - Dyspnoea [Unknown]
  - Gastric haemorrhage [Unknown]
  - Death [Fatal]
